FAERS Safety Report 10567772 (Version 1)
Quarter: 2014Q4

REPORT INFORMATION
  Report Type: Spontaneous
  Country: US (occurrence: None)
  Receive Date: 20141105
  Receipt Date: 20141105
  Transmission Date: 20150529
  Serious: No
  Sender: FDA-Public Use
  Company Number: None

PATIENT
  Age: 73 Year
  Sex: Male

DRUGS (1)
  1. TACROLIMUS. [Suspect]
     Active Substance: TACROLIMUS
     Indication: PRODUCT USED FOR UNKNOWN INDICATION
     Dosage: 2.5 (TOTAL DOSE), Q12H, PO
     Route: 048
     Dates: start: 20140501

REACTIONS (2)
  - Muscle spasms [None]
  - Dysuria [None]

NARRATIVE: CASE EVENT DATE: 20141020
